FAERS Safety Report 7710959-2 (Version None)
Quarter: 2011Q3

REPORT INFORMATION
  Report Type: 
  Country: None (occurrence: None)
  Receive Date: 20110825
  Receipt Date: 20110816
  Transmission Date: 20111222
  Serious: Yes (Hospitalization)
  Sender: FDA-Public Use
  Company Number: US-MERCK-1108USA01970

PATIENT
  Age: 63 Year
  Sex: Female

DRUGS (9)
  1. MAXALT [Suspect]
     Indication: HEADACHE
     Dosage: 3 TABLETS AT NIGHT
     Route: 048
     Dates: start: 20110729, end: 20110729
  2. HYDROCHLOROTHIAZIDE [Concomitant]
     Route: 065
  3. ESTRADIOL [Concomitant]
     Route: 065
  4. CHOLECALCIFEROL [Concomitant]
     Route: 065
  5. EQUATE (ASPIRIN) [Concomitant]
     Route: 065
  6. ACETAMINOPHEN AND HYDROCODONE BITARTRATE [Concomitant]
     Route: 065
  7. LISINOPRIL [Concomitant]
     Route: 065
  8. COZAAR [Concomitant]
     Route: 065
  9. MELOXICAM [Concomitant]
     Route: 065

REACTIONS (1)
  - DRUG INEFFECTIVE [None]
